FAERS Safety Report 20435248 (Version 2)
Quarter: 2022Q2

REPORT INFORMATION
  Report Type: Spontaneous
  Country: US (occurrence: US)
  Receive Date: 20220206
  Receipt Date: 20220404
  Transmission Date: 20220720
  Serious: No
  Sender: FDA-Public Use
  Company Number: US-SA-SAC20220201000174

PATIENT
  Age: 67 Year
  Sex: Female

DRUGS (45)
  1. DUPIXENT [Suspect]
     Active Substance: DUPILUMAB
     Indication: Acute coronary syndrome
     Dosage: 300 MG, QOW
     Route: 058
  2. DUPIXENT [Suspect]
     Active Substance: DUPILUMAB
     Indication: Myocardial infarction
     Route: 058
  3. DUPIXENT [Suspect]
     Active Substance: DUPILUMAB
     Indication: Asthma
  4. DUPIXENT [Suspect]
     Active Substance: DUPILUMAB
     Indication: Asthma
  5. EPINEPHRINE [Concomitant]
     Active Substance: EPINEPHRINE
  6. DIPHENHYDRAMINE [Concomitant]
     Active Substance: DIPHENHYDRAMINE
  7. ACETAMINOPHEN [Concomitant]
     Active Substance: ACETAMINOPHEN
     Dosage: 750 MG
  8. CUVITRU [Concomitant]
     Active Substance: HUMAN IMMUNOGLOBULIN G
     Dosage: 750 MG
  9. KEFLEX [Concomitant]
     Active Substance: CEPHALEXIN
  10. VITAMIN C [Concomitant]
     Active Substance: ASCORBIC ACID
     Dosage: UNK MG
  11. CLONIDINE [Concomitant]
     Active Substance: CLONIDINE
     Dosage: 02 MG
  12. PREDNISONE [Concomitant]
     Active Substance: PREDNISONE
     Dosage: 2 MG
  13. LIDOCAINE [Concomitant]
     Active Substance: LIDOCAINE
     Dosage: 25 MG
  14. QUETIAPINE FUMARATE [Concomitant]
     Active Substance: QUETIAPINE FUMARATE
     Dosage: 10 MG
  15. CALCIUM [Concomitant]
     Active Substance: CALCIUM
     Dosage: 50 MG
  16. ZINC [Concomitant]
     Active Substance: ZINC
     Dosage: 50 MG
  17. METOPROLOL TARTRATE [Concomitant]
     Active Substance: METOPROLOL TARTRATE
  18. FISH OIL [Concomitant]
     Active Substance: FISH OIL
     Dosage: 1 MG
  19. ALPRAZOLAM [Concomitant]
     Active Substance: ALPRAZOLAM
     Dosage: 100 MG
  20. ALPRAZOLAM [Concomitant]
     Active Substance: ALPRAZOLAM
     Dosage: 150 MG
  21. VITAMIN D2 [Concomitant]
     Active Substance: ERGOCALCIFEROL
     Dosage: 15 MG
  22. MELOXICAM [Concomitant]
     Active Substance: MELOXICAM
  23. BUPROPION [Concomitant]
     Active Substance: BUPROPION
     Dosage: 100 MG, 1X
  24. CONCERTA [Concomitant]
     Active Substance: METHYLPHENIDATE HYDROCHLORIDE
     Dosage: 100 MG
  25. NYSTATIN [Concomitant]
     Active Substance: NYSTATIN
     Dosage: 36 MG, 1X
  26. .ALPHA.-TOCOPHEROL [Concomitant]
     Active Substance: .ALPHA.-TOCOPHEROL
  27. TIZANIDINE [Concomitant]
     Active Substance: TIZANIDINE
     Dosage: 4 MG
  28. LASIX [Concomitant]
     Active Substance: FUROSEMIDE
     Dosage: 4 MG
  29. SPIRIVA [Concomitant]
     Active Substance: TIOTROPIUM BROMIDE MONOHYDRATE
     Dosage: 40 MG
  30. FERROUS SULFATE [Concomitant]
     Active Substance: FERROUS SULFATE
     Dosage: 10 MG
  31. PERCOCET [Concomitant]
     Active Substance: ACETAMINOPHEN\OXYCODONE HYDROCHLORIDE
     Dosage: UNK
  32. POTASSIUM CHLORIDE [Concomitant]
     Active Substance: POTASSIUM CHLORIDE
     Dosage: 400 MG
  33. THEOPHYLLINE [Concomitant]
     Active Substance: THEOPHYLLINE
     Dosage: 10 MG
  34. DALIRESP [Concomitant]
     Active Substance: ROFLUMILAST
  35. ADVAIR HFA [Concomitant]
     Active Substance: FLUTICASONE PROPIONATE\SALMETEROL XINAFOATE
  36. DOXYCYCLINE [Concomitant]
     Active Substance: DOXYCYCLINE
  37. SYNTHROID [Concomitant]
     Active Substance: LEVOTHYROXINE SODIUM
     Dosage: 100 MG
  38. CLONIDINE HYDROCHLORIDE [Concomitant]
     Active Substance: CLONIDINE HYDROCHLORIDE
  39. BUPROPION HYDROCHLORIDE [Concomitant]
     Active Substance: BUPROPION HYDROCHLORIDE
  40. TIZANIDINE HYDROCHLORIDE [Concomitant]
     Active Substance: TIZANIDINE HYDROCHLORIDE
  41. LASIX [Concomitant]
     Active Substance: FUROSEMIDE
  42. DOXYCYCLINE HYCLATE [Concomitant]
     Active Substance: DOXYCYCLINE HYCLATE
  43. MAGNESIUM [Concomitant]
     Active Substance: MAGNESIUM
  44. VITAMIN D NOS [Concomitant]
     Active Substance: VITAMIN D NOS
  45. PROBIOTIC 10 [BIFIDOBACTERIUM BIFIDUM;BIFIDOBACTERIUM LACTIS;LACTOBACI [Concomitant]

REACTIONS (3)
  - Pain [Unknown]
  - Product use in unapproved indication [Unknown]
  - Product use issue [Unknown]
